FAERS Safety Report 6533197-8 (Version None)
Quarter: 2010Q1

REPORT INFORMATION
  Report Type: 
  Country: None (occurrence: None)
  Receive Date: 20100111
  Receipt Date: 20100104
  Transmission Date: 20100710
  Serious: Yes (Hospitalization, Other)
  Sender: FDA-Public Use
  Company Number: US-JNJFOC-20080405378

PATIENT
  Sex: Female
  Weight: 83.92 kg

DRUGS (1)
  1. ORTHO EVRA [Suspect]
     Indication: CONTRACEPTION
     Route: 062

REACTIONS (10)
  - ABNORMAL WEIGHT GAIN [None]
  - CHEST PAIN [None]
  - DYSPNOEA [None]
  - HAEMANGIOMA [None]
  - INAPPROPRIATE SCHEDULE OF DRUG ADMINISTRATION [None]
  - INFERTILITY FEMALE [None]
  - PALPITATIONS [None]
  - SYNCOPE [None]
  - THROMBOSIS [None]
  - VISUAL ACUITY REDUCED [None]
